FAERS Safety Report 7520467-X (Version None)
Quarter: 2011Q2

REPORT INFORMATION
  Report Type: 
  Country: None (occurrence: None)
  Receive Date: 20110602
  Receipt Date: 20110524
  Transmission Date: 20111010
  Serious: Yes (Death, Life-Threatening, Other)
  Sender: FDA-Public Use
  Company Number: US-RB-026546-11

PATIENT
  Age: 59 Year
  Sex: Male

DRUGS (1)
  1. SUBOXONE [Suspect]
     Indication: PRODUCT USED FOR UNKNOWN INDICATION
     Dosage: SUBLINGUAL FILM, DOSING INFORMATION UNKNOWN.
     Route: 065

REACTIONS (7)
  - OFF LABEL USE [None]
  - SUBSTANCE ABUSE [None]
  - OEDEMA PERIPHERAL [None]
  - DYSPNOEA [None]
  - CHEST PAIN [None]
  - THERAPEUTIC RESPONSE UNEXPECTED [None]
  - CARDIAC FAILURE [None]
